FAERS Safety Report 6929261-1 (Version None)
Quarter: 2010Q3

REPORT INFORMATION
  Report Type: 
  Country: None (occurrence: None)
  Receive Date: 20100812
  Receipt Date: 20100728
  Transmission Date: 20110219
  Serious: No
  Sender: FDA-Public Use
  Company Number: SPI201000197

PATIENT
  Age: 39 Year
  Sex: Female

DRUGS (1)
  1. AMITIZA [Suspect]
     Dosage: 24 MCG

REACTIONS (3)
  - DYSPNOEA [None]
  - FLUSHING [None]
  - RASH [None]
